FAERS Safety Report 11548736 (Version 1)
Quarter: 2015Q3

REPORT INFORMATION
  Report Type: Spontaneous
  Country: US (occurrence: US)
  Receive Date: 20150924
  Receipt Date: 20150924
  Transmission Date: 20151125
  Serious: No
  Sender: FDA-Public Use
  Company Number: US-INCYTE CORPORATION-2015IN002002

PATIENT
  Age: 58 Year
  Sex: Male

DRUGS (5)
  1. IRBESARTAN. [Concomitant]
     Active Substance: IRBESARTAN
  2. LEVOTHYROXINE. [Concomitant]
     Active Substance: LEVOTHYROXINE
  3. ULORIC [Concomitant]
     Active Substance: FEBUXOSTAT
  4. JAKAFI [Suspect]
     Active Substance: RUXOLITINIB
     Indication: MYELOFIBROSIS
     Dosage: 20 MG, BID
     Route: 048
     Dates: start: 20150227
  5. METOPROLOL [Concomitant]
     Active Substance: METOPROLOL

REACTIONS (2)
  - Paraesthesia oral [Unknown]
  - Candida infection [Unknown]

NARRATIVE: CASE EVENT DATE: 20150505
